FAERS Safety Report 6758058-0 (Version None)
Quarter: 2010Q2

REPORT INFORMATION
  Report Type: 
  Country: None (occurrence: None)
  Receive Date: 20100524
  Receipt Date: 20100223
  Transmission Date: 20101027
  Serious: No
  Sender: FDA-Public Use
  Company Number: 007626

PATIENT
  Sex: Male
  Weight: 80.9 kg

DRUGS (6)
  1. CIMZIA [Suspect]
     Indication: CROHN'S DISEASE
     Dosage: (400 MG SUBCUTANEOUS)
     Route: 058
     Dates: start: 20090101
  2. PREDNISONE [Concomitant]
  3. ENTOCORT EC [Concomitant]
  4. LEXAPRO [Concomitant]
  5. ATIVAN [Concomitant]
  6. NYSTATIN [Concomitant]

REACTIONS (7)
  - DIZZINESS [None]
  - FATIGUE [None]
  - HYPOAESTHESIA [None]
  - INFLUENZA LIKE ILLNESS [None]
  - PAIN IN EXTREMITY [None]
  - PARAESTHESIA [None]
  - VISUAL IMPAIRMENT [None]
